FAERS Safety Report 25489142 (Version 1)
Quarter: 2025Q2

REPORT INFORMATION
  Report Type: Spontaneous
  Country: US (occurrence: US)
  Receive Date: 20250627
  Receipt Date: 20250627
  Transmission Date: 20250716
  Serious: No
  Sender: SANOFI AVENTIS
  Company Number: US-SA-2025SA180898

PATIENT
  Sex: Male
  Weight: 77.27 kg

DRUGS (2)
  1. DUPIXENT [Suspect]
     Active Substance: DUPILUMAB
     Indication: Dermatitis atopic
     Dosage: 300 MG QOW
     Route: 058
  2. CIBINQO [Concomitant]
     Active Substance: ABROCITINIB

REACTIONS (3)
  - Scratch [Recovering/Resolving]
  - Dry skin [Recovering/Resolving]
  - Therapeutic response decreased [Recovering/Resolving]
